FAERS Safety Report 12167911 (Version 1)
Quarter: 2016Q1

REPORT INFORMATION
  Report Type: Spontaneous
  Country: US (occurrence: None)
  Receive Date: 20160309
  Receipt Date: 20160309
  Transmission Date: 20160526
  Serious: Yes (Other)
  Sender: FDA-Public Use
  Company Number: None

PATIENT
  Age: 73 Year
  Sex: Female
  Weight: 86.18 kg

DRUGS (7)
  1. CLORTHALIDONE [Concomitant]
  2. NAPROXEN. [Concomitant]
     Active Substance: NAPROXEN
  3. LIPITOR [Concomitant]
     Active Substance: ATORVASTATIN CALCIUM
  4. TAMOXIFEN [Concomitant]
     Active Substance: TAMOXIFEN
  5. VITAMINS [Concomitant]
     Active Substance: VITAMINS
  6. ANASTROZOLE TABLETS 1 MG APOTEX CORP. [Suspect]
     Active Substance: ANASTROZOLE
     Indication: BREAST CANCER
     Dosage: 1 MG 1 TAB QDAY, ONCE A DAY, BY MOUTH
     Route: 048
     Dates: start: 20160121, end: 20160131
  7. LISINOPRIL. [Concomitant]
     Active Substance: LISINOPRIL

REACTIONS (4)
  - Nausea [None]
  - Headache [None]
  - Fatigue [None]
  - Pain in extremity [None]

NARRATIVE: CASE EVENT DATE: 201601
